FAERS Safety Report 6432015-6 (Version None)
Quarter: 2009Q4

REPORT INFORMATION
  Report Type: 
  Country: None (occurrence: None)
  Receive Date: 20091109
  Receipt Date: 20091027
  Transmission Date: 20100525
  Serious: Yes (Other)
  Sender: FDA-Public Use
  Company Number: AU-JNJFOC-20091101616

PATIENT
  Age: 29 Year
  Sex: Female

DRUGS (4)
  1. PARACETAMOL [Suspect]
     Route: 065
  2. PARACETAMOL [Suspect]
     Indication: BREAST PAIN
     Route: 065
  3. ASPIRIN [Suspect]
     Route: 065
  4. ASPIRIN [Suspect]
     Indication: PROCEDURAL PAIN
     Route: 065

REACTIONS (1)
  - ANAPHYLACTIC REACTION [None]
